FAERS Safety Report 15066576 (Version 18)
Quarter: 2021Q2

REPORT INFORMATION
  Report Type: Spontaneous
  Country: FR (occurrence: FR)
  Receive Date: 20180626
  Receipt Date: 20210415
  Transmission Date: 20210716
  Serious: Yes (Other)
  Sender: FDA-Public Use
  Company Number: FR-BAUSCH-BL-2018-017471

PATIENT
  Age: 1 Day
  Sex: Male
  Weight: 1.89 kg

DRUGS (69)
  1. INSULIN LISPRO [Suspect]
     Active Substance: INSULIN LISPRO
     Indication: TYPE 2 DIABETES MELLITUS
     Route: 064
     Dates: start: 20170224, end: 20170224
  2. AMOXICILLIN. [Suspect]
     Active Substance: AMOXICILLIN
     Dosage: DURATION: 1 YEAR 11 DAYS
     Route: 064
     Dates: start: 20170804, end: 20170914
  3. FOLIC ACID. [Suspect]
     Active Substance: FOLIC ACID
     Route: 064
     Dates: start: 20170313, end: 20170914
  4. FOLIC ACID. [Suspect]
     Active Substance: FOLIC ACID
     Route: 064
     Dates: start: 20170313
  5. POTASSIUM CHLORIDE. [Suspect]
     Active Substance: POTASSIUM CHLORIDE
     Route: 064
     Dates: start: 20180804
  6. FUROSEMIDE. [Suspect]
     Active Substance: FUROSEMIDE
     Route: 064
  7. LABETALOL [Suspect]
     Active Substance: LABETALOL\LABETALOL HYDROCHLORIDE
     Route: 064
  8. INSULIN [Suspect]
     Active Substance: INSULIN NOS
     Route: 064
  9. FERROUS SULFATE. [Suspect]
     Active Substance: FERROUS SULFATE
     Route: 064
  10. LARGACTIL [Suspect]
     Active Substance: CHLORPROMAZINE
     Route: 064
  11. INSULIN LISPRO [Suspect]
     Active Substance: INSULIN LISPRO
     Route: 064
     Dates: start: 20170224
  12. AMOXICILLIN. [Suspect]
     Active Substance: AMOXICILLIN
     Route: 064
     Dates: start: 201708, end: 20180811
  13. NICARDIPINE HYDROCHLORIDE. [Suspect]
     Active Substance: NICARDIPINE HYDROCHLORIDE
     Route: 064
     Dates: start: 20170516
  14. CHLORHYDRATE DE PROPRANOLOL [Suspect]
     Active Substance: PROPRANOLOL HYDROCHLORIDE
     Route: 064
     Dates: start: 20170720
  15. METFORMIN HYDROCHLORIDE. [Suspect]
     Active Substance: METFORMIN HYDROCHLORIDE
     Indication: TYPE 2 DIABETES MELLITUS
     Dosage: DURATION: 4 MONTHS 26 DAYS
     Route: 064
     Dates: start: 20160930, end: 20170224
  16. METFORMIN HYDROCHLORIDE. [Suspect]
     Active Substance: METFORMIN HYDROCHLORIDE
     Route: 064
     Dates: start: 20170804
  17. GLICLAZIDE [Suspect]
     Active Substance: GLICLAZIDE
     Indication: TYPE 2 DIABETES MELLITUS
     Dosage: DURATION: 4 MONTHS 26 DAYS
     Route: 064
     Dates: start: 20160930, end: 20170224
  18. FOLIC ACID. [Suspect]
     Active Substance: FOLIC ACID
     Indication: NORMOCHROMIC NORMOCYTIC ANAEMIA
     Route: 064
     Dates: start: 20170224, end: 20170313
  19. FOLIC ACID. [Suspect]
     Active Substance: FOLIC ACID
     Route: 064
     Dates: start: 20170313, end: 20170313
  20. AMITRIPTYLINE HYDROCHLORIDE. [Suspect]
     Active Substance: AMITRIPTYLINE HYDROCHLORIDE
     Indication: DIABETIC NEUROPATHY
     Dosage: DURATION: 11 MONTHS 16 DAYS
     Route: 064
     Dates: start: 20160930, end: 20170914
  21. FOLINIC ACID [Suspect]
     Active Substance: LEUCOVORIN
     Indication: NORMOCHROMIC NORMOCYTIC ANAEMIA
     Route: 064
  22. CALCIUM FOLINATE [Suspect]
     Active Substance: LEUCOVORIN CALCIUM
     Indication: NORMOCHROMIC NORMOCYTIC ANAEMIA
     Route: 064
     Dates: start: 20170224, end: 20170313
  23. NICARDIPINE HYDROCHLORIDE. [Suspect]
     Active Substance: NICARDIPINE HYDROCHLORIDE
     Route: 064
     Dates: start: 20170405
  24. NICARDIPINE HYDROCHLORIDE. [Suspect]
     Active Substance: NICARDIPINE HYDROCHLORIDE
     Route: 064
     Dates: start: 20170405
  25. LEVEMIR [Suspect]
     Active Substance: INSULIN DETEMIR
     Indication: TYPE 2 DIABETES MELLITUS
     Dosage: DURATION: 4 MONTHS 26 DAYS
     Route: 064
     Dates: start: 20160930, end: 20170224
  26. LARGACTIL [Suspect]
     Active Substance: CHLORPROMAZINE
     Route: 064
     Dates: start: 20170722
  27. FOLIC ACID. [Suspect]
     Active Substance: FOLIC ACID
     Route: 064
  28. GABAPENTIN. [Suspect]
     Active Substance: GABAPENTIN
     Indication: DIABETIC NEUROPATHY
     Route: 064
     Dates: start: 20160930
  29. LABETALOL [Suspect]
     Active Substance: LABETALOL\LABETALOL HYDROCHLORIDE
     Indication: HYPERTENSION
     Dosage: DURATION : 3 MONTHS 30 DAYS
     Route: 064
     Dates: start: 20170516, end: 20170914
  30. FORLAX [Suspect]
     Active Substance: POLYETHYLENE GLYCOL 4000
     Dosage: BIOGARAN, DURATION; 6 MONTHS 7 DAYS
     Route: 064
     Dates: start: 20160930, end: 20170405
  31. CHLORPROMAZINE HYDROCHLORIDE. [Suspect]
     Active Substance: CHLORPROMAZINE HYDROCHLORIDE
     Indication: PRODUCT USED FOR UNKNOWN INDICATION
     Route: 064
     Dates: start: 20170720
  32. NICARDIPINE HYDROCHLORIDE. [Suspect]
     Active Substance: NICARDIPINE HYDROCHLORIDE
     Indication: HYPERTENSION
     Dosage: DURATION : 5 MONTHS 10 DAYS
     Route: 064
     Dates: start: 20170405, end: 20170914
  33. METFORMIN HYDROCHLORIDE. [Suspect]
     Active Substance: METFORMIN HYDROCHLORIDE
     Dosage: DURATION: 4 MONTHS 26 DAYS
     Route: 064
     Dates: start: 20160930, end: 20170224
  34. NICARDIPINE HYDROCHLORIDE. [Suspect]
     Active Substance: NICARDIPINE HYDROCHLORIDE
     Indication: HYPERTENSION
     Route: 064
     Dates: start: 20170313, end: 20170405
  35. FOLIC ACID. [Suspect]
     Active Substance: FOLIC ACID
     Route: 064
     Dates: start: 20170313, end: 20170313
  36. GABAPENTIN. [Suspect]
     Active Substance: GABAPENTIN
     Route: 064
  37. LANTUS [Suspect]
     Active Substance: INSULIN GLARGINE
     Indication: TYPE 2 DIABETES MELLITUS
     Dosage: DURATION: 6 MONTHS 22 DAYS
     Route: 064
     Dates: start: 20170224, end: 20170914
  38. AMITRIPTYLINE HYDROCHLORIDE. [Suspect]
     Active Substance: AMITRIPTYLINE HYDROCHLORIDE
     Route: 064
     Dates: start: 20160930
  39. CHLORPROMAZINE HYDROCHLORIDE. [Suspect]
     Active Substance: CHLORPROMAZINE HYDROCHLORIDE
     Route: 064
  40. MACROGOL BIOGARAN [Suspect]
     Active Substance: POLYETHYLENE GLYCOLS
     Indication: CONSTIPATION
     Dosage: BIOGARAN, DURATION; 6 MONTHS 7 DAYS
     Route: 064
     Dates: start: 20160930, end: 20170405
  41. METFORMIN HYDROCHLORIDE. [Suspect]
     Active Substance: METFORMIN HYDROCHLORIDE
     Route: 064
     Dates: start: 20170224
  42. TRAMADOL HYDROCHLORIDE. [Suspect]
     Active Substance: TRAMADOL HYDROCHLORIDE
     Indication: DIABETIC NEUROPATHY
     Dosage: DURATION: 5 MONTHS 5 DAYS
     Route: 064
     Dates: start: 20160930, end: 20170306
  43. LARGACTIL [Suspect]
     Active Substance: CHLORPROMAZINE
     Indication: BIPOLAR I DISORDER
     Route: 064
     Dates: start: 20170720
  44. NICOTINE. [Suspect]
     Active Substance: NICOTINE
     Indication: EX-TOBACCO USER
     Dosage: DURATION:2 MONTHS 23 DAYS
     Route: 064
     Dates: start: 20170224, end: 20170516
  45. POTASSIUM CHLORIDE. [Suspect]
     Active Substance: POTASSIUM CHLORIDE
     Indication: HYPOKALAEMIA
     Dosage: QD (2 TO 3 TIMES PER DAY)
     Route: 064
     Dates: start: 20170804
  46. METHYLDOPA. [Suspect]
     Active Substance: METHYLDOPA
     Indication: HYPERTENSION
     Route: 064
     Dates: start: 20170720
  47. FUROSEMIDE. [Suspect]
     Active Substance: FUROSEMIDE
     Indication: HYPERTENSION
     Route: 064
     Dates: start: 20170516
  48. FOLINIC ACID [Suspect]
     Active Substance: LEUCOVORIN
     Route: 064
     Dates: start: 20170224, end: 20170313
  49. FERROUS SULFATE. [Suspect]
     Active Substance: FERROUS SULFATE
     Indication: NORMOCHROMIC NORMOCYTIC ANAEMIA
     Dosage: DURATION: 6 MONTHS 2 DAYS
     Route: 064
     Dates: start: 20170313, end: 20170914
  50. INSULIN [Suspect]
     Active Substance: INSULIN NOS
     Indication: TYPE 2 DIABETES MELLITUS
     Dosage: DURATION: 1 YEAR 1 MONTH 26 DAYS
     Route: 064
     Dates: start: 20161230, end: 20180224
  51. CHLORHYDRATE DE PROPRANOLOL [Suspect]
     Active Substance: PROPRANOLOL HYDROCHLORIDE
     Indication: HYPERTENSION
     Route: 064
     Dates: start: 20170516
  52. RAMIPRIL. [Suspect]
     Active Substance: RAMIPRIL
     Indication: HYPERTENSION
     Route: 064
     Dates: start: 20160930, end: 20170924
  53. INSULIN LISPRO [Suspect]
     Active Substance: INSULIN LISPRO
     Route: 064
     Dates: start: 20170224
  54. NICARDIPINE HYDROCHLORIDE. [Suspect]
     Active Substance: NICARDIPINE HYDROCHLORIDE
     Route: 064
     Dates: start: 20170313, end: 20180405
  55. GABAPENTIN. [Suspect]
     Active Substance: GABAPENTIN
     Route: 064
     Dates: start: 20160930
  56. FUROSEMIDE. [Suspect]
     Active Substance: FUROSEMIDE
     Route: 064
     Dates: start: 201705
  57. METFORMIN HYDROCHLORIDE. [Suspect]
     Active Substance: METFORMIN HYDROCHLORIDE
     Route: 064
     Dates: start: 20170804
  58. TRAMADOL HYDROCHLORIDE. [Suspect]
     Active Substance: TRAMADOL HYDROCHLORIDE
     Dosage: DURATION: 5 MONTHS 5 DAYS
     Route: 064
     Dates: start: 20160930, end: 20170306
  59. ARIPIPRAZOLE. [Suspect]
     Active Substance: ARIPIPRAZOLE
     Indication: BIPOLAR I DISORDER
     Dosage: DURATION:4 MONTHS 26 DAYS
     Route: 064
     Dates: start: 20160930, end: 20170224
  60. AMOXICILLIN. [Suspect]
     Active Substance: AMOXICILLIN
     Indication: PRODUCT USED FOR UNKNOWN INDICATION
     Route: 064
     Dates: start: 20170804, end: 20170811
  61. NICOTINE. [Suspect]
     Active Substance: NICOTINE
     Route: 064
     Dates: start: 20170224
  62. NICARDIPINE HYDROCHLORIDE. [Suspect]
     Active Substance: NICARDIPINE HYDROCHLORIDE
     Route: 064
     Dates: start: 20170405
  63. GABAPENTIN. [Suspect]
     Active Substance: GABAPENTIN
     Route: 064
     Dates: start: 20160930
  64. LANTUS [Suspect]
     Active Substance: INSULIN GLARGINE
     Route: 064
     Dates: start: 20170224
  65. FUROSEMIDE. [Suspect]
     Active Substance: FUROSEMIDE
     Route: 064
     Dates: start: 20170516
  66. FERROUS SULFATE. [Suspect]
     Active Substance: FERROUS SULFATE
     Route: 064
     Dates: start: 20170313
  67. FORLAX [Suspect]
     Active Substance: POLYETHYLENE GLYCOL 4000
     Indication: CONSTIPATION
     Dosage: DURATION 4 MONTHS 26 DAYS
     Route: 064
     Dates: start: 20160930, end: 20170224
  68. FERROUS SULFATE. [Suspect]
     Active Substance: FERROUS SULFATE
     Indication: PRODUCT USED FOR UNKNOWN INDICATION
     Route: 064
     Dates: start: 20170313
  69. NICARDIPINE HYDROCHLORIDE. [Suspect]
     Active Substance: NICARDIPINE HYDROCHLORIDE
     Route: 064
     Dates: start: 20170313

REACTIONS (5)
  - Premature baby [Not Recovered/Not Resolved]
  - Foetal disorder [Unknown]
  - Foetal exposure during pregnancy [Unknown]
  - Low birth weight baby [Unknown]
  - Neutropenia neonatal [Not Recovered/Not Resolved]

NARRATIVE: CASE EVENT DATE: 2017
